FAERS Safety Report 7626187-5 (Version None)
Quarter: 2011Q3

REPORT INFORMATION
  Report Type: 
  Country: None (occurrence: None)
  Receive Date: 20110713
  Receipt Date: 20110629
  Transmission Date: 20111222
  Serious: Yes (Hospitalization)
  Sender: FDA-Public Use
  Company Number: 2011PL000091

PATIENT
  Age: 75 Year
  Sex: Male
  Weight: 74.8435 kg

DRUGS (11)
  1. IMODIUM /00384302/ [Concomitant]
  2. QUESTRAN [Concomitant]
  3. ATENOLOL [Concomitant]
  4. JANTOVEN [Concomitant]
  5. NORVASC [Concomitant]
  6. PRAVACHOL [Concomitant]
  7. LOTRONEX [Suspect]
     Indication: IRRITABLE BOWEL SYNDROME
     Dosage: 1 MG; BID; PO
     Route: 048
     Dates: start: 20100304, end: 20110612
  8. DOXAZOSIN MESYLATE [Concomitant]
  9. FOSINOPRIL SODIUM [Concomitant]
  10. PANTOPRAZOLE [Concomitant]
  11. METFORMIN HCL [Concomitant]

REACTIONS (2)
  - SMALL INTESTINAL OBSTRUCTION [None]
  - RESPIRATORY RATE INCREASED [None]
